FAERS Safety Report 6681693-5 (Version None)
Quarter: 2010Q2

REPORT INFORMATION
  Report Type: 
  Country: None (occurrence: None)
  Receive Date: 20100412
  Receipt Date: 20100326
  Transmission Date: 20101027
  Serious: Yes (Hospitalization)
  Sender: FDA-Public Use
  Company Number: 2009003549

PATIENT
  Age: 72 Year
  Sex: Female
  Weight: 45 kg

DRUGS (13)
  1. ERLOTINIB (ERLOTINIB) (TABLET)(ERLOTINIB) [Suspect]
     Indication: NON-SMALL CELL LUNG CANCER
     Dosage: (100 MG,QD), ORAL
     Route: 048
     Dates: start: 20090904, end: 20091029
  2. ANTIPRURITIC NOS [Concomitant]
     Indication: DRUG USE FOR UNKNOWN INDICATION
     Dosage: TOPICAL
     Route: 061
  3. VERAPAMIL HYDROCHLORIDE [Concomitant]
  4. MUCODYNE (CARBOCISTEINE) [Concomitant]
  5. HUSCODE (HUSCODE) [Concomitant]
  6. CANDESARTAN CILEXETIL [Concomitant]
  7. OPALMON (LIMAPROST) [Concomitant]
  8. PIOGLITAZONE HCL [Concomitant]
  9. LIPITOR [Concomitant]
  10. OLOPATADINE HYDROCHLORIDE [Concomitant]
  11. B10-THREE [Concomitant]
  12. TATHION (GLUTATHIONE) [Concomitant]
  13. ZINC OXIDE(ZINC OXIDE) [Concomitant]

REACTIONS (10)
  - BLOOD PRESSURE DECREASED [None]
  - DECREASED APPETITE [None]
  - DEHYDRATION [None]
  - GENERAL PHYSICAL CONDITION ABNORMAL [None]
  - LUNG ADENOCARCINOMA [None]
  - MALIGNANT NEOPLASM PROGRESSION [None]
  - PURULENCE [None]
  - SKIN EROSION [None]
  - TERMINAL STATE [None]
  - THERMAL BURN [None]
